FAERS Safety Report 22815054 (Version 3)
Quarter: 2024Q1

REPORT INFORMATION
  Report Type: Spontaneous
  Country: US (occurrence: US)
  Receive Date: 20230811
  Receipt Date: 20240215
  Transmission Date: 20240410
  Serious: No
  Sender: FDA-Public Use
  Company Number: US-BRISTOL-MYERS SQUIBB COMPANY-2023-098677

PATIENT
  Age: 72 Year
  Sex: Female

DRUGS (2)
  1. LENALIDOMIDE [Suspect]
     Active Substance: LENALIDOMIDE
     Indication: Neoplasm
     Dosage: FREQUENCY-TAKE 1 CAPSULE BY MOUTH EVERY DAY ON DAYS 1-21 THEN 7
     Route: 048
     Dates: start: 20230613
  2. LENALIDOMIDE [Suspect]
     Active Substance: LENALIDOMIDE
     Route: 048

REACTIONS (2)
  - Decreased appetite [Not Recovered/Not Resolved]
  - Taste disorder [Not Recovered/Not Resolved]
